FAERS Safety Report 11441747 (Version 1)
Quarter: 2015Q3

REPORT INFORMATION
  Report Type: Report from Study
  Country: US (occurrence: US)
  Receive Date: 20150901
  Receipt Date: 20150901
  Transmission Date: 20151125
  Serious: Yes (Death, Other)
  Sender: FDA-Public Use
  Company Number: US-ASTELLAS-2015US021886

PATIENT
  Sex: Female

DRUGS (15)
  1. ERLOTINIB [Suspect]
     Active Substance: ERLOTINIB
     Indication: METASTASES TO NERVOUS SYSTEM
  2. BENADRYL [Concomitant]
     Active Substance: DIPHENHYDRAMINE HYDROCHLORIDE
     Indication: PRODUCT USED FOR UNKNOWN INDICATION
     Route: 065
  3. DECADRON [Concomitant]
     Active Substance: DEXAMETHASONE
     Indication: PRODUCT USED FOR UNKNOWN INDICATION
     Route: 065
  4. AVASTIN [Suspect]
     Active Substance: BEVACIZUMAB
     Indication: LUNG NEOPLASM MALIGNANT
     Route: 042
  5. TAXOTERE [Concomitant]
     Active Substance: DOCETAXEL
     Indication: PRODUCT USED FOR UNKNOWN INDICATION
     Route: 065
  6. GEMZAR [Concomitant]
     Active Substance: GEMCITABINE HYDROCHLORIDE
     Indication: PRODUCT USED FOR UNKNOWN INDICATION
     Dosage: UNK UNK, UNKNOWN FREQ.
     Route: 065
  7. CIMETIDINE [Concomitant]
     Active Substance: CIMETIDINE
     Indication: PRODUCT USED FOR UNKNOWN INDICATION
     Route: 065
  8. AVASTIN [Suspect]
     Active Substance: BEVACIZUMAB
     Route: 042
  9. ERLOTINIB [Suspect]
     Active Substance: ERLOTINIB
     Indication: LUNG NEOPLASM MALIGNANT
  10. AVASTIN [Suspect]
     Active Substance: BEVACIZUMAB
     Indication: MALIGNANT RESPIRATORY TRACT NEOPLASM
     Route: 042
     Dates: start: 20070605
  11. TYLENOL [Concomitant]
     Active Substance: ACETAMINOPHEN
     Indication: PRODUCT USED FOR UNKNOWN INDICATION
     Route: 065
  12. ERLOTINIB [Suspect]
     Active Substance: ERLOTINIB
     Indication: MALIGNANT RESPIRATORY TRACT NEOPLASM
     Route: 048
     Dates: start: 20070330
  13. HEPARIN [Concomitant]
     Active Substance: HEPARIN SODIUM
     Indication: PRODUCT USED FOR UNKNOWN INDICATION
     Dosage: UNK UNK, UNKNOWN FREQ.
     Route: 065
  14. AVASTIN [Suspect]
     Active Substance: BEVACIZUMAB
     Route: 042
  15. TAGAMET [Concomitant]
     Active Substance: CIMETIDINE
     Indication: PRODUCT USED FOR UNKNOWN INDICATION
     Route: 065

REACTIONS (11)
  - Pleural fibrosis [Unknown]
  - Pain [Recovered/Resolved]
  - Musculoskeletal chest pain [Unknown]
  - Dyspnoea [Unknown]
  - Pericardial effusion [Unknown]
  - Metastases to pleura [Unknown]
  - Spinal osteoarthritis [Unknown]
  - Aortic arteriosclerosis [Unknown]
  - Death [Fatal]
  - Cholelithiasis [Unknown]
  - Pyrexia [Unknown]
